FAERS Safety Report 13318008 (Version 1)
Quarter: 2017Q1

REPORT INFORMATION
  Report Type: Spontaneous
  Country: US (occurrence: US)
  Receive Date: 20170308
  Receipt Date: 20170308
  Transmission Date: 20170428
  Serious: No
  Sender: FDA-Public Use
  Company Number: US-AMGEN-USASP2016079499

PATIENT
  Age: 87 Year
  Sex: Female

DRUGS (1)
  1. SENSIPAR [Suspect]
     Active Substance: CINACALCET HYDROCHLORIDE
     Indication: HYPERPARATHYROIDISM
     Dosage: 30 MG, QD
     Route: 048

REACTIONS (5)
  - Fluid retention [Unknown]
  - Malnutrition [Unknown]
  - Decreased appetite [Not Recovered/Not Resolved]
  - Blood calcium increased [Unknown]
  - Feeding disorder [Unknown]

NARRATIVE: CASE EVENT DATE: 201508
